FAERS Safety Report 9054364 (Version 1)
Quarter: 2013Q1

REPORT INFORMATION
  Report Type: Spontaneous
  Country: US (occurrence: US)
  Receive Date: 20130208
  Receipt Date: 20130208
  Transmission Date: 20140127
  Serious: No
  Sender: FDA-Public Use
  Company Number: US-GLAXOSMITHKLINE-A0748446A

PATIENT
  Age: 54 Year
  Sex: Female

DRUGS (13)
  1. PAXIL CR [Suspect]
     Indication: GENERALISED ANXIETY DISORDER
     Route: 048
     Dates: start: 20080906
  2. PAXIL [Suspect]
     Indication: DEPRESSION
     Dosage: 80MGD PER DAY
     Route: 048
     Dates: start: 20120203, end: 20120301
  3. ONE-A-DAY VITAMIN [Concomitant]
  4. NIFEDIPINE [Concomitant]
  5. DIOVAN [Concomitant]
  6. GABAPENTIN [Concomitant]
  7. XANAX [Concomitant]
  8. FIORICET [Concomitant]
  9. LOMOTIL [Concomitant]
  10. RHINOCORT [Concomitant]
  11. OXYGEN [Concomitant]
  12. ALBUTEROL [Concomitant]
  13. XANAX [Concomitant]

REACTIONS (7)
  - Drug ineffective [Unknown]
  - Flatulence [Unknown]
  - Insomnia [Unknown]
  - Constipation [Unknown]
  - Depression [Unknown]
  - Abdominal pain upper [Unknown]
  - Oedema peripheral [Unknown]
